FAERS Safety Report 10202150 (Version 1)
Quarter: 2014Q2

REPORT INFORMATION
  Report Type: Spontaneous
  Country: US (occurrence: US)
  Receive Date: 20140528
  Receipt Date: 20140528
  Transmission Date: 20141212
  Serious: Yes (Hospitalization)
  Sender: FDA-Public Use
  Company Number: US-GLAXOSMITHKLINE-A1074750A

PATIENT
  Sex: Male

DRUGS (1)
  1. PROMACTA [Suspect]
     Indication: ESSENTIAL THROMBOCYTHAEMIA
     Dosage: 75MG PER DAY
     Route: 065
     Dates: start: 20130814

REACTIONS (3)
  - Hepatic infection [Unknown]
  - Kidney infection [Unknown]
  - Pulmonary thrombosis [Unknown]
